FAERS Safety Report 9216891 (Version 1)
Quarter: 2013Q2

REPORT INFORMATION
  Report Type: Spontaneous
  Country: US (occurrence: US)
  Receive Date: 20130408
  Receipt Date: 20130408
  Transmission Date: 20140414
  Serious: Yes (Other)
  Sender: FDA-Public Use
  Company Number: US-BAYER-2013-041435

PATIENT
  Sex: 0

DRUGS (1)
  1. ALEVE CAPLET [Suspect]
     Indication: MUSCLE SPASMS
     Dosage: UNK

REACTIONS (3)
  - Drug hypersensitivity [None]
  - Dyspnoea [None]
  - Anxiety [None]
